FAERS Safety Report 13269700 (Version 1)
Quarter: 2017Q1

REPORT INFORMATION
  Report Type: Spontaneous
  Country: US (occurrence: US)
  Receive Date: 20170224
  Receipt Date: 20170224
  Transmission Date: 20170428
  Serious: Yes (Hospitalization)
  Sender: FDA-Public Use
  Company Number: US-BEH-2017078366

PATIENT
  Age: 56 Year
  Sex: Male
  Weight: 60.32 kg

DRUGS (13)
  1. ZEMAIRA [Suspect]
     Active Substance: .ALPHA.1-PROTEINASE INHIBITOR HUMAN
     Indication: EMPHYSEMA
     Dosage: UNK
     Route: 042
  2. XARELTO [Concomitant]
     Active Substance: RIVAROXABAN
  3. OXYGEN. [Concomitant]
     Active Substance: OXYGEN
  4. SYMBICORT [Concomitant]
     Active Substance: BUDESONIDE\FORMOTEROL FUMARATE DIHYDRATE
  5. ZEMAIRA [Suspect]
     Active Substance: .ALPHA.1-PROTEINASE INHIBITOR HUMAN
     Indication: ALPHA-1 ANTI-TRYPSIN DEFICIENCY
     Dosage: 60 MG/KG, UNK
     Route: 042
     Dates: start: 20100701
  6. PROVENTIL [Concomitant]
     Active Substance: ALBUTEROL
  7. TESTOSTERONE. [Concomitant]
     Active Substance: TESTOSTERONE
  8. PRENATAL VITAMINS                  /02014401/ [Concomitant]
     Active Substance: VITAMINS
  9. MIRTAZAPINE. [Concomitant]
     Active Substance: MIRTAZAPINE
  10. CLONAZEPAM. [Concomitant]
     Active Substance: CLONAZEPAM
  11. NYSTATIN. [Concomitant]
     Active Substance: NYSTATIN
  12. SPIRIVA [Concomitant]
     Active Substance: TIOTROPIUM BROMIDE MONOHYDRATE
  13. AZITHROMYCIN ANHYDROUS. [Concomitant]
     Active Substance: AZITHROMYCIN ANHYDROUS

REACTIONS (3)
  - Deep vein thrombosis [Unknown]
  - Pulmonary embolism [Unknown]
  - Pyrexia [Unknown]

NARRATIVE: CASE EVENT DATE: 20170213
